FAERS Safety Report 4323658-4 (Version None)
Quarter: 2004Q1

REPORT INFORMATION
  Report Type: 
  Country: None (occurrence: None)
  Receive Date: 20040325
  Receipt Date: 20040325
  Transmission Date: 20041129
  Serious: Yes (Hospitalization)
  Sender: FDA-Public Use
  Company Number: None

PATIENT
  Age: 74 Year
  Sex: Female
  Weight: 79.8331 kg

DRUGS (7)
  1. ENOXAPARIN 80 MG AVENTIS [Suspect]
     Indication: ATRIAL FIBRILLATION
     Dosage: 80 MG Q12H SQ
     Route: 058
     Dates: start: 20020621, end: 20020625
  2. WARFARIN SODIUM [Suspect]
     Indication: ATRIAL FIBRILLATION
     Dosage: 2.5 MG EVERY DAY ORAL
     Route: 048
     Dates: start: 20020620, end: 20020624
  3. SYNDROID [Concomitant]
  4. TOPROL-XL [Concomitant]
  5. COZAAR [Concomitant]
  6. CELEBREX [Concomitant]
  7. CIPRO [Concomitant]

REACTIONS (7)
  - ABDOMINAL PAIN LOWER [None]
  - COAGULOPATHY [None]
  - HAEMORRHAGE [None]
  - HYPOTENSION [None]
  - HYPOVOLAEMIA [None]
  - MEDICATION ERROR [None]
  - RETROPERITONEAL HAEMATOMA [None]
